APPROVED DRUG PRODUCT: KETOCONAZOLE
Active Ingredient: KETOCONAZOLE
Strength: 200MG
Dosage Form/Route: TABLET;ORAL
Application: A075597 | Product #001
Applicant: AUROBINDO PHARMA USA INC
Approved: Dec 23, 1999 | RLD: No | RS: No | Type: DISCN